FAERS Safety Report 9010008 (Version 1)
Quarter: 2013Q1

REPORT INFORMATION
  Report Type: Spontaneous
  Country: US (occurrence: US)
  Receive Date: 20130111
  Receipt Date: 20130111
  Transmission Date: 20140127
  Serious: No
  Sender: FDA-Public Use
  Company Number: US-ASTRAZENECA-2012SE96325

PATIENT
  Age: 57 Year
  Sex: Female
  Weight: 92.5 kg

DRUGS (6)
  1. CRESTOR [Suspect]
     Indication: BLOOD CHOLESTEROL INCREASED
     Route: 048
     Dates: start: 20121015
  2. CRESTOR [Suspect]
     Indication: BLOOD CHOLESTEROL INCREASED
     Dosage: UNKNOWN DOSE DAILY
     Route: 048
  3. FISH OIL [Concomitant]
     Indication: SUPPLEMENTATION THERAPY
  4. D3 [Concomitant]
     Indication: SUPPLEMENTATION THERAPY
  5. TIAZAC [Concomitant]
     Indication: HYPERTENSION
  6. ASPRIN [Concomitant]
     Indication: PROPHYLAXIS

REACTIONS (4)
  - Fatigue [Recovered/Resolved]
  - Thinking abnormal [Recovered/Resolved]
  - Myalgia [Recovered/Resolved]
  - Off label use [Unknown]
